FAERS Safety Report 4840213-8 (Version None)
Quarter: 2005Q4

REPORT INFORMATION
  Report Type: 
  Country: None (occurrence: None)
  Receive Date: 20051129
  Receipt Date: 20051118
  Transmission Date: 20060501
  Serious: Yes (Other)
  Sender: FDA-Public Use
  Company Number: US-MERCK-0511USA03474

PATIENT
  Age: 65 Year
  Sex: Female
  Weight: 118 kg

DRUGS (7)
  1. VIOXX [Suspect]
     Indication: ARTHROPATHY
     Route: 048
     Dates: start: 20020321, end: 20031201
  2. ASPIRIN [Concomitant]
     Route: 065
  3. TYLENOL [Concomitant]
     Route: 065
  4. MOTRIN [Concomitant]
     Route: 065
  5. HYDRALAZINE [Concomitant]
     Route: 065
  6. MELPHALAN [Concomitant]
     Route: 065
  7. MAXZIDE [Concomitant]
     Route: 065

REACTIONS (4)
  - CARDIAC OPERATION [None]
  - CARDIOVASCULAR DISORDER [None]
  - GENERAL SYMPTOM [None]
  - RENAL DISORDER [None]
